FAERS Safety Report 8803464 (Version 3)
Quarter: 2012Q4

REPORT INFORMATION
  Report Type: 
  Country: CA (occurrence: CA)
  Receive Date: 20120924
  Receipt Date: 20121008
  Transmission Date: 20130627
  Serious: Yes (Hospitalization)
  Sender: FDA-Public Use
  Company Number: CA-ALEXION-A201201750

PATIENT
  Age: 28 Year
  Sex: Female

DRUGS (12)
  1. SOLIRIS 300MG [Suspect]
     Indication: PAROXYSMAL NOCTURNAL HAEMOGLOBINURIA
     Dosage: 600 mg, qw
     Route: 042
     Dates: start: 20111124, end: 20111215
  2. SOLIRIS 300MG [Suspect]
     Dosage: 900 mg, q2w
     Route: 042
     Dates: start: 20111222
  3. PREDNISONE [Concomitant]
     Dosage: 25 mg, prn
  4. COUMADIN [Concomitant]
     Dosage: 9 mg, qd
  5. FOLIC ACID [Concomitant]
     Dosage: 5 mg, qd
  6. DIDROCAL [Concomitant]
     Dosage: UNK, qd
  7. VITAMIN A [Concomitant]
     Dosage: UNK, qd
  8. VITAMIN B12 [Concomitant]
     Dosage: UNK, qd
  9. VITAMIN C [Concomitant]
     Dosage: UNK, qd
  10. VITAMIN D [Concomitant]
     Dosage: UNK, qd
  11. VITAMIN E [Concomitant]
     Dosage: UNK, qd
  12. ZINC [Concomitant]
     Dosage: UNK, qd

REACTIONS (1)
  - Meningitis meningococcal [Recovered/Resolved]
